FAERS Safety Report 14211428 (Version 1)
Quarter: 2017Q4

REPORT INFORMATION
  Report Type: Spontaneous
  Country: US (occurrence: None)
  Receive Date: 20171121
  Receipt Date: 20171121
  Transmission Date: 20180321
  Serious: Yes (Death)
  Sender: FDA-Public Use
  Company Number: None

PATIENT
  Age: 83 Year
  Sex: Male

DRUGS (11)
  1. SIMVASTATIN. [Concomitant]
     Active Substance: SIMVASTATIN
  2. VANTAS KIT [Concomitant]
  3. AZILECT [Concomitant]
     Active Substance: RASAGILINE MESYLATE
  4. RASAGILINE. [Concomitant]
     Active Substance: RASAGILINE
  5. ROPINIROLE. [Concomitant]
     Active Substance: ROPINIROLE
  6. ZYTIGA [Suspect]
     Active Substance: ABIRATERONE ACETATE
     Indication: PROSTATE CANCER
     Route: 048
     Dates: start: 201705
  7. PREDNISONE. [Concomitant]
     Active Substance: PREDNISONE
  8. REQUIP [Concomitant]
     Active Substance: ROPINIROLE HYDROCHLORIDE
  9. COQ10 [Concomitant]
     Active Substance: UBIDECARENONE
  10. SINEMET [Concomitant]
     Active Substance: CARBIDOPA\LEVODOPA
  11. CARB/LEVO ER [Concomitant]

REACTIONS (1)
  - Death [None]
